FAERS Safety Report 16138821 (Version 1)
Quarter: 2019Q1

REPORT INFORMATION
  Report Type: Spontaneous
  Country: US (occurrence: US)
  Receive Date: 20190330
  Receipt Date: 20190330
  Transmission Date: 20190418
  Serious: Yes (Other)
  Sender: FDA-Public Use
  Company Number: US-TEVA-2019-US-1030925

PATIENT
  Sex: Female

DRUGS (1)
  1. BUSPIRONE HYDROCHLORIDE TABLET TEVA [Suspect]
     Active Substance: BUSPIRONE HYDROCHLORIDE
     Route: 065

REACTIONS (2)
  - Coeliac disease [Unknown]
  - Feeling abnormal [Unknown]
